FAERS Safety Report 5109808-0 (Version None)
Quarter: 2006Q3

REPORT INFORMATION
  Report Type: 
  Country: None (occurrence: None)
  Receive Date: 20060918
  Receipt Date: 20060918
  Transmission Date: 20061208
  Serious: Yes (Other)
  Sender: FDA-Public Use
  Company Number: None

PATIENT
  Age: 53 Year
  Sex: Female
  Weight: 58.9676 kg

DRUGS (1)
  1. PREMARIN [Suspect]
     Indication: ARTIFICIAL MENOPAUSE
     Dates: start: 20060913, end: 20060915

REACTIONS (9)
  - DEPRESSION [None]
  - GENERAL PHYSICAL HEALTH DETERIORATION [None]
  - IRRITABILITY [None]
  - MENTAL DISORDER [None]
  - MOOD SWINGS [None]
  - PHARMACEUTICAL PRODUCT COMPLAINT [None]
  - SKIN DISORDER [None]
  - SLEEP DISORDER [None]
  - VISUAL DISTURBANCE [None]
